FAERS Safety Report 8970328 (Version 1)
Quarter: 2012Q4

REPORT INFORMATION
  Report Type: 
  Country: US (occurrence: US)
  Receive Date: 20121218
  Receipt Date: 20121218
  Transmission Date: 20130627
  Serious: No
  Sender: FDA-Public Use
  Company Number: US-BRISTOL-MYERS SQUIBB COMPANY-17042540

PATIENT
  Age: 88 Year
  Sex: Female
  Weight: 55.33 kg

DRUGS (3)
  1. ABILIFY TABS 2 MG [Suspect]
     Indication: DEPRESSION
     Dosage: Once daily in morning.
  2. ABILIFY TABS 2 MG [Suspect]
     Indication: ANXIETY
     Dosage: Once daily in morning.
  3. ZOLOFT [Concomitant]

REACTIONS (6)
  - Weight increased [Not Recovered/Not Resolved]
  - Joint swelling [Not Recovered/Not Resolved]
  - Constipation [Not Recovered/Not Resolved]
  - Visual impairment [Unknown]
  - Drug ineffective [Unknown]
  - Physical product label issue [Unknown]
